FAERS Safety Report 7503762-X (Version None)
Quarter: 2011Q1

REPORT INFORMATION
  Report Type: 
  Country: None (occurrence: None)
  Receive Date: 20110331
  Receipt Date: 20100521
  Transmission Date: 20110831
  Serious: Yes (Hospitalization)
  Sender: FDA-Public Use
  Company Number: 595787

PATIENT

DRUGS (1)
  1. HEPARIN SODIUM [Suspect]
     Indication: CONDOM
     Dosage: INTRAVENOUS
     Route: 042
     Dates: start: 20100101, end: 20100101

REACTIONS (1)
  - DRUG INEFFECTIVE [None]
